FAERS Safety Report 25234996 (Version 1)
Quarter: 2025Q2

REPORT INFORMATION
  Report Type: Spontaneous
  Country: IT (occurrence: IT)
  Receive Date: 20250424
  Receipt Date: 20250424
  Transmission Date: 20250716
  Serious: Yes (Other)
  Sender: MYLAN
  Company Number: None

PATIENT
  Age: 50 Year
  Sex: Female

DRUGS (12)
  1. ARIPIPRAZOLE [Suspect]
     Active Substance: ARIPIPRAZOLE
     Indication: Product used for unknown indication
     Dosage: 10 DOSAGE FORM, AM (10 TABLETS IN THE MORNING,)
     Dates: start: 20250331, end: 20250331
  2. ARIPIPRAZOLE [Suspect]
     Active Substance: ARIPIPRAZOLE
     Dosage: 10 DOSAGE FORM, AM (10 TABLETS IN THE MORNING,)
     Route: 065
     Dates: start: 20250331, end: 20250331
  3. ARIPIPRAZOLE [Suspect]
     Active Substance: ARIPIPRAZOLE
     Dosage: 10 DOSAGE FORM, AM (10 TABLETS IN THE MORNING,)
     Route: 065
     Dates: start: 20250331, end: 20250331
  4. ARIPIPRAZOLE [Suspect]
     Active Substance: ARIPIPRAZOLE
     Dosage: 10 DOSAGE FORM, AM (10 TABLETS IN THE MORNING,)
     Dates: start: 20250331, end: 20250331
  5. SERTRALINE [Suspect]
     Active Substance: SERTRALINE HYDROCHLORIDE
     Indication: Product used for unknown indication
     Dosage: UNK, AM (1 PACK IN THE MORNING)
     Dates: start: 20250331, end: 20250331
  6. SERTRALINE [Suspect]
     Active Substance: SERTRALINE HYDROCHLORIDE
     Dosage: UNK, AM (1 PACK IN THE MORNING)
     Route: 065
     Dates: start: 20250331, end: 20250331
  7. SERTRALINE [Suspect]
     Active Substance: SERTRALINE HYDROCHLORIDE
     Dosage: UNK, AM (1 PACK IN THE MORNING)
     Route: 065
     Dates: start: 20250331, end: 20250331
  8. SERTRALINE [Suspect]
     Active Substance: SERTRALINE HYDROCHLORIDE
     Dosage: UNK, AM (1 PACK IN THE MORNING)
     Dates: start: 20250331, end: 20250331
  9. TAVOR (LORAZEPAM) [Suspect]
     Active Substance: LORAZEPAM
     Indication: Product used for unknown indication
     Dosage: 10 DOSAGE FORM, AM (10 TABLETS OF 1 MG AT MORNING)
     Dates: start: 20250331, end: 20250331
  10. TAVOR (LORAZEPAM) [Suspect]
     Active Substance: LORAZEPAM
     Dosage: 10 DOSAGE FORM, AM (10 TABLETS OF 1 MG AT MORNING)
     Route: 065
     Dates: start: 20250331, end: 20250331
  11. TAVOR (LORAZEPAM) [Suspect]
     Active Substance: LORAZEPAM
     Dosage: 10 DOSAGE FORM, AM (10 TABLETS OF 1 MG AT MORNING)
     Route: 065
     Dates: start: 20250331, end: 20250331
  12. TAVOR (LORAZEPAM) [Suspect]
     Active Substance: LORAZEPAM
     Dosage: 10 DOSAGE FORM, AM (10 TABLETS OF 1 MG AT MORNING)
     Dates: start: 20250331, end: 20250331

REACTIONS (2)
  - Intentional self-injury [Recovered/Resolved]
  - Drug abuse [Recovered/Resolved]

NARRATIVE: CASE EVENT DATE: 20250331
